FAERS Safety Report 5700229-6 (Version None)
Quarter: 2008Q2

REPORT INFORMATION
  Report Type: 
  Country: None (occurrence: None)
  Receive Date: 20080410
  Receipt Date: 20080328
  Transmission Date: 20081010
  Serious: Yes (Life-Threatening, Other)
  Sender: FDA-Public Use
  Company Number: GB-ELI_LILLY_AND_COMPANY-GB200803006495

PATIENT
  Age: 44 Year
  Sex: Female
  Weight: 67 kg

DRUGS (14)
  1. CYMBALTA [Suspect]
     Indication: BIPOLAR DISORDER
     Dosage: UNK, 3/D
     Route: 048
     Dates: start: 20080131
  2. BACLOFEN [Concomitant]
     Dosage: 7 D/F, UNKNOWN
     Route: 065
     Dates: start: 20021204
  3. BISACODYL [Concomitant]
     Dosage: UNK, UNKNOWN
     Dates: start: 20060719
  4. CODEINE SUL TAB [Concomitant]
     Indication: PAIN
     Dosage: UNK, EVERY 4 HRS
     Dates: start: 20080313
  5. DANTROLENE SODIUM [Concomitant]
     Dosage: 1 D/F, DAILY (1/D)
     Dates: start: 20061220
  6. DIAZEPAM [Concomitant]
     Dosage: UNK, UNKNOWN
     Dates: start: 20070205
  7. DICLOFENAC SODIUM [Concomitant]
     Dosage: UNK, 3/D
     Dates: start: 20070607
  8. DOCUSATE SODIUM [Concomitant]
     Dosage: 2 D/F, 2/D
     Dates: start: 20060526
  9. FLOXACILLIN SODIUM [Concomitant]
     Dosage: 1 D/F, 4/D
     Dates: start: 20080312
  10. HYDROCORTISONE [Concomitant]
     Dosage: 1 D/F, 4/D
     Dates: start: 20080313
  11. IBUPROFEN [Concomitant]
     Dosage: UNK, 2/D
     Dates: start: 20060511
  12. PARACETAMOL [Concomitant]
     Dosage: 2 D/F, 4/D
     Dates: start: 20051116
  13. PROVERA [Concomitant]
     Dosage: UNK, UNKNOWN
     Dates: start: 20071102
  14. SENNA [Concomitant]
     Dosage: 3 D/F, DAILY (1/D)
     Dates: start: 20060526

REACTIONS (1)
  - DEPRESSION SUICIDAL [None]
